FAERS Safety Report 19483912 (Version 1)
Quarter: 2021Q3

REPORT INFORMATION
  Report Type: Report from Study
  Country: CA (occurrence: CA)
  Receive Date: 20210701
  Receipt Date: 20210701
  Transmission Date: 20211014
  Serious: Yes (Hospitalization)
  Sender: FDA-Public Use
  Company Number: CA-GLAXOSMITHKLINE-CA2021AMR091151

PATIENT
  Age: 29 Year
  Sex: Female

DRUGS (1)
  1. MEPOLIZUMAB [Suspect]
     Active Substance: MEPOLIZUMAB
     Indication: ASTHMA
     Dosage: 100 MG, Z
     Route: 058
     Dates: start: 20201215

REACTIONS (4)
  - Abdominal discomfort [Unknown]
  - Asthma [Unknown]
  - Product dose omission issue [Unknown]
  - Respiration abnormal [Unknown]

NARRATIVE: CASE EVENT DATE: 202106
